FAERS Safety Report 8776743 (Version 1)
Quarter: 2012Q4

REPORT INFORMATION
  Report Type: 
  Country: US (occurrence: US)
  Receive Date: 20120910
  Receipt Date: 20120910
  Transmission Date: 20130627
  Serious: No
  Sender: FDA-Public Use
  Company Number: US-PFIZER INC-2012217389

PATIENT
  Age: 84 Year
  Sex: Female

DRUGS (2)
  1. REVATIO [Suspect]
     Indication: PULMONARY HYPERTENSION
     Dosage: 20 mg, 3x/day
     Dates: start: 20120105
  2. REVATIO [Suspect]
     Dosage: 40 mg, 3x/day

REACTIONS (1)
  - Headache [Unknown]
